FAERS Safety Report 24888765 (Version 4)
Quarter: 2025Q2

REPORT INFORMATION
  Report Type: Report from Study
  Country: US (occurrence: US)
  Receive Date: 20250127
  Receipt Date: 20250616
  Transmission Date: 20250717
  Serious: Yes (Other)
  Sender: BIOCODEX
  Company Number: US-BIOCODEX2-2025000049

PATIENT
  Age: 20 Year
  Sex: Male
  Weight: 44.7 kg

DRUGS (11)
  1. DIACOMIT [Suspect]
     Active Substance: STIRIPENTOL
     Indication: Lennox-Gastaut syndrome
     Dosage: TAKE 750 MG AND 1000 MG VIA G-TUBE IN TWO SEPARATE DOSES EACH DAY.
     Route: 050
  2. DIACOMIT [Suspect]
     Active Substance: STIRIPENTOL
     Indication: Lennox-Gastaut syndrome
     Dosage: 1000 MG VIA G-TUBE TWICE DAILY
     Route: 050
     Dates: start: 20220809
  3. DIACOMIT [Suspect]
     Active Substance: STIRIPENTOL
     Indication: Lennox-Gastaut syndrome
     Dosage: 900 MG VIA G-TUBE THREE TIMES DAILY
     Route: 050
     Dates: start: 20220809
  4. DIACOMIT [Suspect]
     Active Substance: STIRIPENTOL
     Indication: Lennox-Gastaut syndrome
     Dosage: 900MG VIA J-TUBE TWICE DAILY
     Route: 050
     Dates: start: 20220809
  5. ATIVAN [Concomitant]
     Active Substance: LORAZEPAM
     Indication: Encephalopathy
     Route: 065
  6. ETHOSUXIMIDE [Concomitant]
     Active Substance: ETHOSUXIMIDE
     Indication: Product used for unknown indication
     Route: 065
  7. LEVOCARNITINE [Concomitant]
     Active Substance: LEVOCARNITINE
     Indication: Epilepsy
     Route: 050
  8. MIRALAX [Concomitant]
     Active Substance: POLYETHYLENE GLYCOL 3350
     Indication: Product used for unknown indication
     Route: 065
  9. NEXIUM [Concomitant]
     Active Substance: ESOMEPRAZOLE MAGNESIUM
     Indication: Product used for unknown indication
     Route: 065
  10. VALPROIC ACID [Concomitant]
     Active Substance: VALPROIC ACID
     Indication: Epilepsy
     Route: 050
  11. VALTOCO [Concomitant]
     Active Substance: DIAZEPAM
     Indication: Epilepsy
     Route: 050

REACTIONS (6)
  - Seizure [Not Recovered/Not Resolved]
  - Off label use [Unknown]
  - Product preparation issue [Not Recovered/Not Resolved]
  - Accidental underdose [Not Recovered/Not Resolved]
  - Off label use [Unknown]
  - Gastrointestinal disorder [Recovered/Resolved]

NARRATIVE: CASE EVENT DATE: 20250412
